FAERS Safety Report 11483070 (Version 1)
Quarter: 2015Q3

REPORT INFORMATION
  Report Type: Spontaneous
  Country: US (occurrence: None)
  Receive Date: 20150909
  Receipt Date: 20150909
  Transmission Date: 20151125
  Serious: Yes (Death)
  Sender: FDA-Public Use
  Company Number: None

PATIENT
  Age: 57 Year
  Sex: Male
  Weight: 70 kg

DRUGS (2)
  1. GADOTERIDOL [Suspect]
     Active Substance: GADOTERIDOL
     Indication: NUCLEAR MAGNETIC RESONANCE IMAGING BRAIN
     Route: 042
     Dates: start: 20150723
  2. FERUMOXYTOL [Suspect]
     Active Substance: FERUMOXYTOL
     Indication: NUCLEAR MAGNETIC RESONANCE IMAGING BRAIN
     Route: 042
     Dates: start: 20150724

REACTIONS (5)
  - Laceration [None]
  - Hyporesponsive to stimuli [None]
  - Brain herniation [None]
  - Subdural haematoma [None]
  - Brain midline shift [None]

NARRATIVE: CASE EVENT DATE: 20150825
